FAERS Safety Report 4925455-5 (Version None)
Quarter: 2006Q1

REPORT INFORMATION
  Report Type: 
  Country: None (occurrence: None)
  Receive Date: 20060228
  Receipt Date: 20050223
  Transmission Date: 20060701
  Serious: No
  Sender: FDA-Public Use
  Company Number: US-GLAXOSMITHKLINE-A0546941A

PATIENT
  Age: 60 Year
  Sex: Female
  Weight: 90 kg

DRUGS (5)
  1. LAMICTAL [Suspect]
     Indication: EPILEPSY
     Dosage: 100MG TWICE PER DAY
     Route: 048
     Dates: start: 20050113
  2. SYNTHROID [Concomitant]
     Route: 048
  3. EFFEXOR [Concomitant]
     Dosage: 300MG PER DAY
     Route: 048
  4. COUMADIN [Concomitant]
     Route: 048
  5. TRAZODONE [Concomitant]
     Dosage: 50MG AT NIGHT
     Route: 048

REACTIONS (1)
  - SKIN ODOUR ABNORMAL [None]
